FAERS Safety Report 26047441 (Version 2)
Quarter: 2025Q4

REPORT INFORMATION
  Report Type: Spontaneous
  Country: CN (occurrence: CN)
  Receive Date: 20251114
  Receipt Date: 20251118
  Transmission Date: 20260118
  Serious: Yes (Death, Hospitalization, Disabling, Other)
  Sender: MERCK SHARP & DOHME LLC
  Company Number: CN-009507513-2348577

PATIENT
  Age: 45 Year
  Sex: Male
  Weight: 69 kg

DRUGS (6)
  1. PEMBROLIZUMAB [Suspect]
     Active Substance: PEMBROLIZUMAB
     Indication: Hepatocellular carcinoma
     Dosage: TIME INTERVAL: TOTAL: 200 MG, ONCE; STRENGTH: 100MG; (ALSO REPORTED AS STARTING ON 16-SEP-2025 AN...
     Route: 041
     Dates: start: 20250921, end: 20250921
  2. PEMBROLIZUMAB [Suspect]
     Active Substance: PEMBROLIZUMAB
     Indication: Hepatocellular carcinoma
     Dosage: TIME INTERVAL: TOTAL: 200 MG, ONCE; STRENGTH: 100MG; (ALSO REPORTED AS STARTING ON 16-SEP-2025 AN...
     Route: 041
     Dates: start: 20251012, end: 20251012
  3. BEVACIZUMAB [Suspect]
     Active Substance: BEVACIZUMAB
     Indication: Hepatocellular carcinoma
     Dosage: TIME INTERVAL: TOTAL: 400 MG, TOTAL; STRENGTH 400 MG; (ALSO REPORTED AS STARTING ON 21-SEP-2025 A...
     Route: 041
     Dates: start: 20251012, end: 20251012
  4. BEVACIZUMAB [Suspect]
     Active Substance: BEVACIZUMAB
     Indication: Hepatocellular carcinoma
     Dosage: TIME INTERVAL: TOTAL: 400 MG, TOTAL; STRENGTH 400 MG; (ALSO REPORTED AS STARTING ON 21-SEP-2025 A...
     Route: 041
     Dates: start: 20250921, end: 20250921
  5. SODIUM CHLORIDE [Concomitant]
     Active Substance: SODIUM CHLORIDE
     Dosage: TIME INTERVAL: TOTAL: 100 ML, ONCE
     Route: 041
     Dates: start: 20250916, end: 20251107
  6. SODIUM CHLORIDE [Concomitant]
     Active Substance: SODIUM CHLORIDE
     Route: 042
     Dates: start: 20250921, end: 20251012

REACTIONS (5)
  - Hepatic failure [Fatal]
  - Palpitations [Not Recovered/Not Resolved]
  - Myasthenic syndrome [Not Recovered/Not Resolved]
  - Acute respiratory failure [Unknown]
  - Product use issue [Unknown]

NARRATIVE: CASE EVENT DATE: 20250101
